FAERS Safety Report 13745662 (Version 1)
Quarter: 2017Q3

REPORT INFORMATION
  Report Type: Spontaneous
  Country: US (occurrence: US)
  Receive Date: 20170712
  Receipt Date: 20170712
  Transmission Date: 20171127
  Serious: Yes (Disabling, Other)
  Sender: FDA-Public Use
  Company Number: None

PATIENT
  Age: 31 Year
  Sex: Female
  Weight: 83.54 kg

DRUGS (2)
  1. DEPO VERA [Concomitant]
  2. BOTOX [Suspect]
     Active Substance: ONABOTULINUMTOXINA
     Indication: MIGRAINE WITH AURA
     Dosage: ?          QUANTITY:.IST ANY RELEVANT TESTS O;?
     Dates: start: 20170501

REACTIONS (12)
  - Fall [None]
  - Movement disorder [None]
  - Injection site reaction [None]
  - Burning sensation [None]
  - Balance disorder [None]
  - Sensory loss [None]
  - Lymphangitis [None]
  - Visual acuity reduced [None]
  - Hypoaesthesia [None]
  - Migraine [None]
  - Ear pain [None]
  - Headache [None]

NARRATIVE: CASE EVENT DATE: 20170502
